FAERS Safety Report 23040311 (Version 1)
Quarter: 2023Q4

REPORT INFORMATION
  Report Type: Spontaneous
  Country: US (occurrence: None)
  Receive Date: 20231006
  Receipt Date: 20231006
  Transmission Date: 20240109
  Serious: Yes (Other)
  Sender: FDA-Public Use
  Company Number: None

PATIENT
  Age: 30 Year
  Sex: Male
  Weight: 99 kg

DRUGS (1)
  1. HEMLIBRA [Suspect]
     Active Substance: EMICIZUMAB-KXWH
     Dosage: OTHER FREQUENCY : WEEKLY;?
     Route: 058
     Dates: start: 20200124

REACTIONS (3)
  - Eye haemorrhage [None]
  - Eye disorder [None]
  - Thrombosis [None]
